FAERS Safety Report 21545883 (Version 1)
Quarter: 2022Q4

REPORT INFORMATION
  Report Type: Spontaneous
  Country: IT (occurrence: IT)
  Receive Date: 20221103
  Receipt Date: 20221103
  Transmission Date: 20230112
  Serious: Yes (Other)
  Sender: FDA-Public Use
  Company Number: None

PATIENT
  Age: 75 Year
  Sex: Male
  Weight: 70 kg

DRUGS (5)
  1. DOCETAXEL [Suspect]
     Active Substance: DOCETAXEL
     Indication: Prostate cancer
     Dosage: UNKNOWN
     Route: 042
     Dates: start: 202112, end: 20220928
  2. DEXAMETHASONE [Concomitant]
     Active Substance: DEXAMETHASONE
     Indication: Hypercalcaemia of malignancy
     Route: 042
     Dates: start: 202112, end: 20220928
  3. PREDNISONE [Concomitant]
     Active Substance: PREDNISONE
     Indication: Prostate cancer
     Dosage: UNKNOWN
     Route: 048
     Dates: start: 202112, end: 20220928
  4. ZOMETA [Concomitant]
     Active Substance: ZOLEDRONIC ACID
     Indication: Hypercalcaemia of malignancy
     Dosage: UNKNOWN
     Route: 042
     Dates: start: 202112, end: 20220928
  5. ONDANSETRON [Concomitant]
     Active Substance: ONDANSETRON
     Indication: Nausea
     Route: 042
     Dates: start: 202112, end: 20220928

REACTIONS (6)
  - Decreased appetite [Recovering/Resolving]
  - Leukopenia [Recovering/Resolving]
  - Dysgeusia [Recovering/Resolving]
  - Vomiting [Recovering/Resolving]
  - Thrombocytopenia [Recovering/Resolving]
  - Thirst [Recovering/Resolving]

NARRATIVE: CASE EVENT DATE: 20211201
